FAERS Safety Report 6279846-3 (Version None)
Quarter: 2009Q3

REPORT INFORMATION
  Report Type: 
  Country: None (occurrence: None)
  Receive Date: 20090723
  Receipt Date: 20090713
  Transmission Date: 20100115
  Serious: Yes (Other)
  Sender: FDA-Public Use
  Company Number: PHHY2009CH28712

PATIENT
  Sex: Male

DRUGS (2)
  1. ZOMETA [Suspect]
     Indication: PROSTATE CANCER METASTATIC
     Dosage: UNK
     Dates: start: 20050101
  2. ZOMETA [Suspect]
     Dosage: UNK

REACTIONS (2)
  - MAXILLARY ANTRUM OPERATION [None]
  - OSTEOMYELITIS [None]
